FAERS Safety Report 12134653 (Version 1)
Quarter: 2016Q1

REPORT INFORMATION
  Report Type: Spontaneous
  Country: JP (occurrence: JP)
  Receive Date: 20160301
  Receipt Date: 20160301
  Transmission Date: 20160526
  Serious: Yes (Other)
  Sender: FDA-Public Use
  Company Number: JP-WATSON-2016-03714

PATIENT
  Age: 71 Year
  Sex: Male
  Weight: 61 kg

DRUGS (2)
  1. HEPARIN SODIUM (UNKNOWN) [Suspect]
     Active Substance: HEPARIN SODIUM
     Indication: PRODUCT USED FOR UNKNOWN INDICATION
     Dosage: 18600 IU, SINGLE
     Route: 065
  2. HEPARIN SODIUM (UNKNOWN) [Suspect]
     Active Substance: HEPARIN SODIUM
     Dosage: 9300 IU, SINGLE
     Route: 065

REACTIONS (3)
  - Cerebral infarction [Recovered/Resolved]
  - Embolism [Recovered/Resolved]
  - Heparin-induced thrombocytopenia [Recovered/Resolved]
